FAERS Safety Report 17409389 (Version 1)
Quarter: 2020Q1

REPORT INFORMATION
  Report Type: Spontaneous
  Country: IT (occurrence: IT)
  Receive Date: 20200212
  Receipt Date: 20200212
  Transmission Date: 20200409
  Serious: Yes (Hospitalization)
  Sender: FDA-Public Use
  Company Number: IT-PFIZER INC-2020061728

PATIENT
  Age: 77 Year
  Sex: Female

DRUGS (7)
  1. TELMISARTAN TEVA ITALIA [Concomitant]
     Indication: HYPERTENSION
     Dosage: 80 MG, UNK
     Route: 048
  2. KCL-RETARD [Concomitant]
     Active Substance: POTASSIUM CHLORIDE
     Indication: HYPOKALAEMIA
     Dosage: 1200 MG, UNK
     Route: 048
  3. ZYVOXID [Suspect]
     Active Substance: LINEZOLID
     Indication: POST PROCEDURAL INFECTION
     Dosage: 1200 MG, DAILY
     Route: 042
     Dates: start: 20191216, end: 20191230
  4. MEROPENEM HIKMA [Concomitant]
     Active Substance: MEROPENEM
     Indication: POST PROCEDURAL INFECTION
     Dosage: 6 G, UNK
     Route: 042
     Dates: start: 20191216, end: 20191230
  5. PANTOPRAZOLO SUN [Concomitant]
     Dosage: 40 MG, UNK
     Route: 041
  6. ENTEROGERMINA [BACILLUS SUBTILIS] [Concomitant]
     Dosage: 3 DF, UNK
     Route: 048
  7. NORVASC [Concomitant]
     Active Substance: AMLODIPINE BESYLATE
     Indication: HYPERTENSION
     Dosage: 10 MG, UNK
     Route: 048

REACTIONS (3)
  - Anaemia [Recovering/Resolving]
  - Bone marrow toxicity [Recovering/Resolving]
  - Leukopenia [Recovered/Resolved]

NARRATIVE: CASE EVENT DATE: 20191230
